FAERS Safety Report 23184634 (Version 2)
Quarter: 2023Q4

REPORT INFORMATION
  Report Type: Report from Study
  Country: US (occurrence: US)
  Receive Date: 20231115
  Receipt Date: 20231120
  Transmission Date: 20240110
  Serious: No
  Sender: FDA-Public Use
  Company Number: US-ABBVIE-5494069

PATIENT
  Sex: Male

DRUGS (1)
  1. VENCLEXTA [Suspect]
     Active Substance: VENETOCLAX
     Indication: Primary amyloidosis
     Dosage: STRENGTH-100 MG?4 TABLETS BY MOUTH DAILY
     Route: 048

REACTIONS (1)
  - Off label use [Unknown]
